FAERS Safety Report 9817688 (Version 1)
Quarter: 2013Q4

REPORT INFORMATION
  Report Type: Spontaneous
  Country: US (occurrence: None)
  Receive Date: 20131223
  Receipt Date: 20131223
  Transmission Date: 20140711
  Serious: No
  Sender: FDA-Public Use
  Company Number: 218690

PATIENT
  Age: 71 Year
  Sex: Male

DRUGS (2)
  1. PICATO [Suspect]
     Indication: PRODUCT USED FOR UNKNOWN INDICATION
  2. FLUOROURACIL [Suspect]
     Indication: PRODUCT USED FOR UNKNOWN INDICATION

REACTIONS (7)
  - Skin reaction [None]
  - Medication error [None]
  - Quality of life decreased [None]
  - Incorrect drug administration duration [None]
  - Drug ineffective [None]
  - Drug administration error [None]
  - Treatment noncompliance [None]
